FAERS Safety Report 6208302-3 (Version None)
Quarter: 2009Q2

REPORT INFORMATION
  Report Type: 
  Country: None (occurrence: None)
  Receive Date: 20090529
  Receipt Date: 20090522
  Transmission Date: 20091009
  Serious: Yes (Other)
  Sender: FDA-Public Use
  Company Number: US-BAYER-200919542NA

PATIENT
  Age: 57 Year
  Sex: Female

DRUGS (1)
  1. NEXAVAR [Suspect]
     Indication: DRUG USE FOR UNKNOWN INDICATION
     Dosage: TOTAL DAILY DOSE: 800 MG  UNIT DOSE: 2000 MG
     Route: 048
     Dates: start: 20090419, end: 20090421

REACTIONS (6)
  - ADVERSE EVENT [None]
  - HEADACHE [None]
  - LIMB DISCOMFORT [None]
  - NAUSEA [None]
  - VISION BLURRED [None]
  - VOMITING [None]
